FAERS Safety Report 6130858-X (Version None)
Quarter: 2009Q1

REPORT INFORMATION
  Report Type: 
  Country: None (occurrence: None)
  Receive Date: 20090325
  Receipt Date: 20090319
  Transmission Date: 20090719
  Serious: Yes (Death, Other)
  Sender: FDA-Public Use
  Company Number: CH-BRISTOL-MYERS SQUIBB COMPANY-14553242

PATIENT
  Age: 43 Year
  Sex: Male

DRUGS (11)
  1. AZACTAM [Suspect]
     Dosage: VIALS.
     Route: 042
     Dates: start: 20090211, end: 20090211
  2. TIENAM [Suspect]
     Dosage: VIALS.
     Route: 042
     Dates: start: 20090206, end: 20090211
  3. ROCEPHIN [Concomitant]
     Dosage: AMPOULES,IV.
     Route: 042
     Dates: start: 20090204, end: 20090206
  4. FLAGYL [Concomitant]
     Dosage: ALSO GIVEN FROM 04FEB-06FEB2009,3DAYS;INF,AMPOULES BAGS.
     Route: 042
     Dates: start: 20090213
  5. CANCIDAS [Concomitant]
     Dosage: TABLETS,TONGUE SOLUBLE;STRENGTH: 55.5MG.
     Route: 042
     Dates: start: 20090211, end: 20090211
  6. CYMEVENE [Concomitant]
     Dosage: VIALS
     Route: 042
     Dates: start: 20090213, end: 20090213
  7. TAVANIC [Concomitant]
     Dates: start: 20090211, end: 20090215
  8. SOLU-CORTEF [Concomitant]
     Dates: start: 20090214, end: 20090220
  9. KONAKION [Concomitant]
     Dosage: KONAKION MM;STRENGTH:10MG;VIALS.
     Route: 042
  10. FOLVITE [Concomitant]
  11. NEXIUM [Concomitant]
     Dosage: STRENGTH:44.5MG,TABLETS.

REACTIONS (2)
  - ACUTE GENERALISED EXANTHEMATOUS PUSTULOSIS [None]
  - TOXIC EPIDERMAL NECROLYSIS [None]
